FAERS Safety Report 8007635-8 (Version None)
Quarter: 2011Q4

REPORT INFORMATION
  Report Type: 
  Country: None (occurrence: None)
  Receive Date: 20111222
  Receipt Date: 20111222
  Transmission Date: 20120403
  Serious: Yes (Hospitalization, Disabling, Other)
  Sender: FDA-Public Use
  Company Number: None

PATIENT
  Sex: Female
  Weight: 53.5244 kg

DRUGS (1)
  1. DIFLUCAN [Suspect]
     Dosage: 400MG DAILY
     Dates: start: 20110421, end: 20111016

REACTIONS (6)
  - WEIGHT DECREASED [None]
  - JAW DISORDER [None]
  - ONYCHOMADESIS [None]
  - TONGUE DISORDER [None]
  - ALOPECIA [None]
  - DISCOMFORT [None]
